FAERS Safety Report 7815768-1 (Version None)
Quarter: 2011Q4

REPORT INFORMATION
  Report Type: 
  Country: None (occurrence: None)
  Receive Date: 20111014
  Receipt Date: 20111011
  Transmission Date: 20120403
  Serious: Yes (Hospitalization)
  Sender: FDA-Public Use
  Company Number: US-SANOFI-AVENTIS-2011SA038795

PATIENT
  Age: 59 Year
  Sex: Male

DRUGS (3)
  1. LANTUS [Suspect]
     Dosage: CURRENTLY ON 44 UNITS IN THE MORNING AND 40 UNITS IN THE EVENING OF THE LANTUS.
     Route: 058
     Dates: start: 20110101
  2. INSULIN ASPART [Concomitant]
  3. LANTUS [Suspect]
     Indication: TYPE 2 DIABETES MELLITUS
     Dosage: DOSE:70 UNIT(S)
     Route: 058

REACTIONS (5)
  - RESPIRATORY ARREST [None]
  - MYOCARDIAL INFARCTION [None]
  - LOSS OF CONSCIOUSNESS [None]
  - CONVULSION [None]
  - BLOOD GLUCOSE INCREASED [None]
